FAERS Safety Report 7072670-3 (Version None)
Quarter: 2010Q4

REPORT INFORMATION
  Report Type: 
  Country: None (occurrence: None)
  Receive Date: 20101029
  Receipt Date: 20100401
  Transmission Date: 20110411
  Serious: No
  Sender: FDA-Public Use
  Company Number: A0846690A

PATIENT
  Age: 61 Year
  Sex: Male

DRUGS (8)
  1. ADVAIR DISKUS 100/50 [Suspect]
     Indication: CHRONIC OBSTRUCTIVE PULMONARY DISEASE
     Dosage: 1PUFF TWICE PER DAY
     Route: 055
     Dates: start: 20100202
  2. DURAGESIC-100 [Concomitant]
  3. ZYRTEC [Concomitant]
  4. TRICOR [Concomitant]
  5. DIAVAN [Concomitant]
  6. TRAZODONE [Concomitant]
  7. PERSERVISION [Concomitant]
  8. VITAMINS [Concomitant]

REACTIONS (2)
  - COUGH [None]
  - PRODUCT QUALITY ISSUE [None]
